FAERS Safety Report 5233010-5 (Version None)
Quarter: 2007Q1

REPORT INFORMATION
  Report Type: 
  Country: None (occurrence: None)
  Receive Date: 20070207
  Receipt Date: 20070126
  Transmission Date: 20070707
  Serious: Yes (Death, Other)
  Sender: FDA-Public Use
  Company Number: US-PFIZER INC-2006067498

PATIENT
  Sex: Male
  Weight: 117.9 kg

DRUGS (1)
  1. BEXTRA [Suspect]
     Indication: NEUROPATHY
     Dates: start: 20040126, end: 20050424

REACTIONS (1)
  - CARDIAC ARREST [None]
